FAERS Safety Report 4277336-0 (Version None)
Quarter: 2004Q1

REPORT INFORMATION
  Report Type: 
  Country: None (occurrence: None)
  Receive Date: 20040121
  Receipt Date: 20040121
  Transmission Date: 20041129
  Serious: Yes (Hospitalization)
  Sender: FDA-Public Use
  Company Number: None

PATIENT
  Age: 78 Year
  Sex: Male
  Weight: 85 kg

DRUGS (11)
  1. AMIODARONE HCL [Suspect]
     Indication: ATRIAL FIBRILLATION
     Dosage: 200MG  QD  ORAL
     Route: 048
     Dates: start: 20030529, end: 20040116
  2. ASPIRIN [Concomitant]
  3. FUROSEMIDE [Concomitant]
  4. LISINOPRIL [Concomitant]
  5. MIRTAZAPINE [Concomitant]
  6. M.V.I. [Concomitant]
  7. SPIRONOLACTONE [Concomitant]
  8. TRAZODONE HCL [Concomitant]
  9. FLUNISOLIDE INHALER [Concomitant]
  10. IPRATROPIUM INHALER [Concomitant]
  11. OXYMETAZOLINE INHALER [Concomitant]

REACTIONS (2)
  - FALL [None]
  - HYPOTHYROIDISM [None]
